FAERS Safety Report 25500706 (Version 2)
Quarter: 2025Q3

REPORT INFORMATION
  Report Type: Spontaneous
  Country: EU (occurrence: EU)
  Receive Date: 20250701
  Receipt Date: 20250707
  Transmission Date: 20251020
  Serious: Yes (Other)
  Sender: PFIZER
  Company Number: EU-PFIZER INC-PV202500077833

PATIENT
  Age: 28 Year
  Sex: Female

DRUGS (20)
  1. SIROLIMUS [Suspect]
     Active Substance: SIROLIMUS
     Indication: Graft versus host disease
     Dosage: 1.5 MG, DAILY
  2. SIROLIMUS [Suspect]
     Active Substance: SIROLIMUS
     Dosage: 1 MG
  3. MYCOPHENOLATE MOFETIL [Concomitant]
     Active Substance: MYCOPHENOLATE MOFETIL
     Indication: Graft versus host disease
     Dosage: 1000 MG, 2X/DAY (B.I.D)
  4. PREDNISOLONE [Concomitant]
     Active Substance: PREDNISOLONE
     Indication: Graft versus host disease
     Dosage: 10 MG, 2X/DAY (B.I.D)
  5. PREDNISOLONE [Concomitant]
     Active Substance: PREDNISOLONE
     Dosage: 1 MG/DAY (LOWERED)
  6. ACYCLOVIR [Concomitant]
     Active Substance: ACYCLOVIR
     Indication: Graft versus host disease
  7. ALLOPURINOL [Concomitant]
     Active Substance: ALLOPURINOL
     Indication: Graft versus host disease
  8. AMLODIPINE [Concomitant]
     Active Substance: AMLODIPINE BESYLATE
     Indication: Graft versus host disease
  9. AMPHOTERICIN B [Concomitant]
     Active Substance: AMPHOTERICIN B
     Indication: Graft versus host disease
  10. CHOLECALCIFEROL [Concomitant]
     Active Substance: CHOLECALCIFEROL
     Indication: Graft versus host disease
  11. COTRIMOXAZOLE [Concomitant]
     Active Substance: SULFAMETHOXAZOLE\TRIMETHOPRIM
     Indication: Graft versus host disease
  12. LEVETIRACETAM [Concomitant]
     Active Substance: LEVETIRACETAM
     Indication: Graft versus host disease
  13. MAGNESIUM [Concomitant]
     Active Substance: MAGNESIUM
     Indication: Graft versus host disease
  14. METOPROLOL [Concomitant]
     Active Substance: METOPROLOL
     Indication: Graft versus host disease
  15. MIRTAZAPINE [Concomitant]
     Active Substance: MIRTAZAPINE
     Indication: Graft versus host disease
  16. PANTOPRAZOLE [Concomitant]
     Active Substance: PANTOPRAZOLE
     Indication: Graft versus host disease
  17. POSACONAZOLE [Concomitant]
     Active Substance: POSACONAZOLE
     Indication: Graft versus host disease
  18. QUETIAPINE [Concomitant]
     Active Substance: QUETIAPINE
     Indication: Graft versus host disease
  19. RAMIPRIL [Concomitant]
     Active Substance: RAMIPRIL
     Indication: Graft versus host disease
  20. TORSEMIDE [Concomitant]
     Active Substance: TORSEMIDE
     Indication: Graft versus host disease

REACTIONS (3)
  - Hypertriglyceridaemia [Recovering/Resolving]
  - Hyperviscosity syndrome [Recovering/Resolving]
  - Off label use [Unknown]
